FAERS Safety Report 7995552-9 (Version None)
Quarter: 2011Q4

REPORT INFORMATION
  Report Type: 
  Country: None (occurrence: None)
  Receive Date: 20111220
  Receipt Date: 20111209
  Transmission Date: 20120403
  Serious: Yes (Hospitalization)
  Sender: FDA-Public Use
  Company Number: DE-ALEXION PHARMACEUTICALS INC.-A201101884

PATIENT
  Sex: Male

DRUGS (8)
  1. ACETYLSALICYLIC ACID SRT [Concomitant]
     Indication: THROMBOSIS PROPHYLAXIS
     Dosage: 1X100 MG
     Route: 048
     Dates: start: 20110601
  2. PROGRAF [Concomitant]
     Indication: RENAL TRANSPLANT
     Dosage: 2X1.5 MG
     Route: 048
     Dates: start: 20111117
  3. MYCOPHENOLATE MOFETIL (CELLCEPT) [Concomitant]
     Indication: RENAL TRANSPLANT
     Dosage: 500-0-250
     Route: 048
     Dates: start: 20110611, end: 20111206
  4. CORTISONE ACETATE [Concomitant]
     Indication: RENAL TRANSPLANT
     Dosage: 1X5 MG
     Route: 048
     Dates: start: 20110818
  5. AMLODIPINE [Concomitant]
     Indication: HYPERTENSION
     Dosage: 2X50 MG
     Route: 048
     Dates: start: 20110601
  6. SOLIRIS [Suspect]
     Indication: HAEMOLYTIC URAEMIC SYNDROME
     Dosage: 300 MG, QW
     Route: 042
     Dates: start: 20110601, end: 20111101
  7. METOPROLOL TARTRATE [Concomitant]
     Indication: HYPERTENSION
     Dosage: 2X50 MG
     Route: 048
     Dates: start: 20110704
  8. SOLIRIS [Suspect]
     Dosage: 600 MG, QW
     Route: 042
     Dates: start: 20111101

REACTIONS (1)
  - EPSTEIN-BARR VIRUS INFECTION [None]
